FAERS Safety Report 10978799 (Version 2)
Quarter: 2015Q2

REPORT INFORMATION
  Report Type: Report from Study
  Country: US (occurrence: US)
  Receive Date: 20150402
  Receipt Date: 20150428
  Transmission Date: 20150821
  Serious: Yes (Other)
  Sender: FDA-Public Use
  Company Number: US-GILEAD-2015-0145384

PATIENT
  Age: 79 Year
  Sex: Female

DRUGS (15)
  1. ASPIRIN                            /00002701/ [Concomitant]
     Active Substance: ASPIRIN
  2. LEVOTHYROXINE [Concomitant]
     Active Substance: LEVOTHYROXINE
  3. LOVASTATIN. [Concomitant]
     Active Substance: LOVASTATIN
  4. RANOLAZINE [Suspect]
     Active Substance: RANOLAZINE
     Indication: ANGINA PECTORIS
     Dosage: 500 MG, BID
     Route: 048
     Dates: start: 20140311
  5. SUCRALFATE. [Concomitant]
     Active Substance: SUCRALFATE
  6. OXYBUTYNIN [Concomitant]
     Active Substance: OXYBUTYNIN
  7. ATENOLOL. [Concomitant]
     Active Substance: ATENOLOL
  8. PYRIDOSTIGMINE BROMIDE. [Concomitant]
     Active Substance: PYRIDOSTIGMINE BROMIDE
  9. LEVEMIR [Concomitant]
     Active Substance: INSULIN DETEMIR
  10. NITROSTAT [Concomitant]
     Active Substance: NITROGLYCERIN
  11. ISOSORBIDE MONONITRATE. [Concomitant]
     Active Substance: ISOSORBIDE MONONITRATE
  12. RANITIDINE [Concomitant]
     Active Substance: RANITIDINE\RANITIDINE HYDROCHLORIDE
  13. TEMAZEPAM. [Concomitant]
     Active Substance: TEMAZEPAM
  14. LORAZEPAM. [Concomitant]
     Active Substance: LORAZEPAM
  15. XARELTO [Concomitant]
     Active Substance: RIVAROXABAN

REACTIONS (3)
  - Confusional state [Unknown]
  - Memory impairment [Not Recovered/Not Resolved]
  - Mental impairment [Unknown]
